FAERS Safety Report 9284447 (Version 2)
Quarter: 2013Q2

REPORT INFORMATION
  Report Type: Spontaneous
  Country: US (occurrence: US)
  Receive Date: 20130510
  Receipt Date: 20130516
  Transmission Date: 20140414
  Serious: Yes (Death)
  Sender: FDA-Public Use
  Company Number: CHPA2013US008007

PATIENT
  Sex: Female

DRUGS (2)
  1. EXCEDRIN UNKNOWN [Suspect]
     Indication: ARTHRITIS
     Dosage: UNK, UNK
     Route: 048
  2. EXCEDRIN UNKNOWN [Suspect]
     Indication: PAIN

REACTIONS (2)
  - Death [Fatal]
  - Drug ineffective [Unknown]
